FAERS Safety Report 19575152 (Version 1)
Quarter: 2021Q3

REPORT INFORMATION
  Report Type: Spontaneous
  Country: US (occurrence: US)
  Receive Date: 20210716
  Receipt Date: 20210716
  Transmission Date: 20211014
  Serious: Yes (Other)
  Sender: FDA-Public Use
  Company Number: None

PATIENT
  Age: 33 Year
  Sex: Male
  Weight: 94.5 kg

DRUGS (1)
  1. NEUTROGENA SUNSCREEN NOS [Suspect]
     Active Substance: AVOBENZONE\HOMOSALATE\OCTISALATE\OCTOCRYLENE OR AVOBENZONE\HOMOSALATE\OCTISALATE\OCTOCRYLENE\OXYBENZONE
     Indication: PROPHYLAXIS AGAINST SOLAR RADIATION
     Dosage: ?          OTHER FREQUENCY:AS NEEDED FOR SUN;?
     Route: 061
     Dates: start: 20190601, end: 20210626

REACTIONS (6)
  - Pain [None]
  - Scar [None]
  - Application site erythema [None]
  - Application site vesicles [None]
  - Application site swelling [None]
  - Urticaria [None]

NARRATIVE: CASE EVENT DATE: 20210626
